FAERS Safety Report 6933717 (Version 11)
Quarter: 2013Q2

REPORT INFORMATION
  Report Type: Report from Study
  Country: CA (occurrence: CA)
  Receive Date: 20090311
  Receipt Date: 20130604
  Transmission Date: 20140414
  Serious: Yes (Hospitalization, Other)
  Sender: FDA-Public Use
  Company Number: US-BRISTOL-MYERS SQUIBB COMPANY-14536627

PATIENT
  Age: 60 Year
  Sex: Female

DRUGS (9)
  1. ORENCIA FOR INJ [Suspect]
     Indication: RHEUMATOID ARTHRITIS
     Dosage: 25MAY,24JUN,31JUL,02SEP09,01OCT09,28OCT09,03DEC09,04JAN10,01FB10,2MY11,30AG11;22MR12;INFU:34;JL15
     Route: 042
     Dates: start: 20090203
  2. PREDNISONE [Concomitant]
  3. VOLTAREN [Concomitant]
  4. METHOTREXATE [Concomitant]
     Dosage: DF=TABLETS?4 TABS TO START TODAY
  5. NORVASC [Concomitant]
  6. ATENOLOL [Concomitant]
  7. ACTONEL [Concomitant]
  8. VITAMIN D [Concomitant]
  9. CALCIUM [Concomitant]

REACTIONS (16)
  - Hypotension [Unknown]
  - Musculoskeletal pain [Unknown]
  - Painful respiration [Unknown]
  - Pallor [Unknown]
  - Hyperhidrosis [Unknown]
  - Dizziness [Unknown]
  - Malaise [Unknown]
  - Chest pain [Unknown]
  - Intervertebral disc protrusion [Not Recovered/Not Resolved]
  - Influenza like illness [Unknown]
  - Nasopharyngitis [Not Recovered/Not Resolved]
  - Rheumatoid arthritis [Unknown]
  - Laryngitis [Unknown]
  - Eyelid margin crusting [Unknown]
  - Eye pruritus [Unknown]
  - Rash pruritic [Unknown]
